FAERS Safety Report 23790153 (Version 1)
Quarter: 2024Q2

REPORT INFORMATION
  Report Type: Report from Study
  Country: US (occurrence: US)
  Receive Date: 20240426
  Receipt Date: 20240426
  Transmission Date: 20240716
  Serious: Yes (Other)
  Sender: FDA-Public Use
  Company Number: US-ABBVIE-5729312

PATIENT
  Sex: Male

DRUGS (8)
  1. SKYRIZI [Suspect]
     Active Substance: RISANKIZUMAB-RZAA
     Indication: Maternal exposure timing unspecified
     Route: 065
  2. SKYRIZI [Suspect]
     Active Substance: RISANKIZUMAB-RZAA
     Route: 065
  3. HUMAN HEPATITIS B VIRUS IMMUNE GLOBULIN [Concomitant]
     Active Substance: HUMAN HEPATITIS B VIRUS IMMUNE GLOBULIN
     Indication: Product used for unknown indication
  4. VITAMIN D [Concomitant]
     Active Substance: VITAMIN D NOS
     Indication: Vitamin supplementation
  5. HUMAN ROTAVIRUS A [Concomitant]
     Active Substance: HUMAN ROTAVIRUS A
     Indication: Product used for unknown indication
  6. HAEMOPHILUS INFLUENZAE TYPE B [Concomitant]
     Active Substance: HAEMOPHILUS INFLUENZAE TYPE B
     Indication: Product used for unknown indication
  7. POLIOMYELITIS VACCINE NOS [Concomitant]
     Active Substance: POLIOMYELITIS VACCINE
     Indication: Polio immunisation
  8. PNEUMOCOCCAL VACCINE POLYVALENT NOS [Concomitant]
     Active Substance: PNEUMOCOCCAL VACCINE POLYVALENT
     Indication: Product used for unknown indication

REACTIONS (6)
  - Neonatal respiratory distress [Recovered/Resolved]
  - Exposure via breast milk [Unknown]
  - Tachypnoea [Recovered/Resolved]
  - Livedo reticularis [Recovered/Resolved]
  - Tachycardia [Recovered/Resolved]
  - Foetal exposure during pregnancy [Unknown]

NARRATIVE: CASE EVENT DATE: 20240112
